FAERS Safety Report 12642796 (Version 1)
Quarter: 2016Q3

REPORT INFORMATION
  Report Type: Spontaneous
  Country: US (occurrence: US)
  Receive Date: 20160811
  Receipt Date: 20160811
  Transmission Date: 20161109
  Serious: No
  Sender: FDA-Public Use
  Company Number: US-JNJFOC-20160707216

PATIENT
  Age: 58 Year
  Sex: Female
  Weight: 108.86 kg

DRUGS (5)
  1. PEPCID AC [Suspect]
     Active Substance: FAMOTIDINE
     Indication: GASTROOESOPHAGEAL REFLUX DISEASE
     Dosage: 1-2 TABLETS UP TO 3 TABLETS PER DAY
     Route: 048
     Dates: start: 20160629
  2. GLIPIZIDE. [Concomitant]
     Active Substance: GLIPIZIDE
     Indication: BLOOD GLUCOSE ABNORMAL
     Dosage: FEW YEARS
     Route: 065
  3. METFORMIN [Concomitant]
     Active Substance: METFORMIN HYDROCHLORIDE
     Indication: BLOOD GLUCOSE ABNORMAL
     Dosage: FEW YEARS
     Route: 065
  4. PEPCID AC [Suspect]
     Active Substance: FAMOTIDINE
     Route: 048
  5. CELEXA [Concomitant]
     Active Substance: CITALOPRAM HYDROBROMIDE
     Indication: DEPRESSION
     Dosage: 6 MONTHS
     Route: 065

REACTIONS (1)
  - Therapeutic response decreased [Unknown]
